FAERS Safety Report 5758795-0 (Version None)
Quarter: 2008Q2

REPORT INFORMATION
  Report Type: 
  Country: None (occurrence: None)
  Receive Date: 20080604
  Receipt Date: 20080421
  Transmission Date: 20081010
  Serious: Yes (Hospitalization)
  Sender: FDA-Public Use
  Company Number: JP-MERCK-0804USA05592

PATIENT
  Age: 87 Year
  Sex: Female

DRUGS (31)
  1. SINGULAIR [Suspect]
     Indication: ASTHMA
     Route: 048
     Dates: start: 20050801
  2. SINGULAIR [Suspect]
     Route: 048
     Dates: start: 20080212, end: 20080226
  3. SINGULAIR [Suspect]
     Route: 048
     Dates: start: 20050801
  4. HOKUNALIN [Concomitant]
     Route: 061
     Dates: start: 20080212
  5. TERSIGAN [Concomitant]
     Route: 048
     Dates: start: 20080212
  6. AMINOPHYLLINE [Suspect]
     Route: 042
     Dates: start: 20080212, end: 20080214
  7. LASIX [Concomitant]
     Route: 048
     Dates: start: 20080212, end: 20080229
  8. LASIX [Concomitant]
     Route: 048
     Dates: start: 20080301, end: 20080306
  9. DEXTROSE [Concomitant]
     Route: 042
     Dates: start: 20080212, end: 20080215
  10. DEXTROSE [Concomitant]
     Route: 042
     Dates: start: 20080220
  11. AMINO ACIDS (UNSPECIFIED) AND CARBOHYDRATES (UNSPECIFIED) AND ELECTROL [Concomitant]
     Route: 042
     Dates: start: 20080208, end: 20080211
  12. AMINO ACIDS (UNSPECIFIED) AND CARBOHYDRATES (UNSPECIFIED) AND ELECTROL [Concomitant]
     Route: 042
     Dates: start: 20080223, end: 20080226
  13. FAMOTIDINE [Concomitant]
     Route: 051
     Dates: start: 20080208, end: 20080215
  14. DEXAMETHASONE [Concomitant]
     Route: 042
     Dates: start: 20080208, end: 20080219
  15. DEXAMETHASONE [Concomitant]
     Route: 042
     Dates: start: 20080220, end: 20080222
  16. LANSOPRAZOLE [Concomitant]
     Route: 048
     Dates: start: 20080216, end: 20080319
  17. SOLITA T-1 [Concomitant]
     Route: 042
     Dates: start: 20080216, end: 20080219
  18. SOLITA T-1 [Concomitant]
     Route: 042
     Dates: start: 20080220, end: 20080222
  19. AMINO ACIDS (UNSPECIFIED) [Concomitant]
     Route: 042
     Dates: start: 20080220, end: 20080222
  20. VITAMINS (UNSPECIFIED) [Concomitant]
     Route: 042
     Dates: start: 20080220, end: 20080222
  21. MINERALS (UNSPECIFIED) [Concomitant]
     Route: 042
     Dates: start: 20080220, end: 20080222
  22. SOLITA [Concomitant]
     Route: 042
     Dates: start: 20080221, end: 20080222
  23. LIRANAFTATE [Concomitant]
     Route: 061
     Dates: start: 20080222
  24. PREDNISOLONE [Concomitant]
     Route: 048
     Dates: start: 20080223, end: 20080227
  25. PREDNISOLONE [Concomitant]
     Route: 048
     Dates: start: 20080223, end: 20080227
  26. PREDNISOLONE [Concomitant]
     Route: 048
     Dates: start: 20080228, end: 20080305
  27. PREDNISOLONE [Concomitant]
     Route: 048
     Dates: start: 20080306, end: 20080326
  28. MEROPEN [Concomitant]
     Route: 042
     Dates: start: 20080305, end: 20080314
  29. ALVESCO [Concomitant]
     Dates: start: 20080306, end: 20080327
  30. UREPEARL [Concomitant]
     Route: 061
     Dates: start: 20080307
  31. HUMULIN R [Concomitant]
     Route: 042

REACTIONS (2)
  - PLATELET COUNT DECREASED [None]
  - STATUS ASTHMATICUS [None]
